FAERS Safety Report 10725302 (Version 1)
Quarter: 2015Q1

REPORT INFORMATION
  Report Type: Spontaneous
  Country: US (occurrence: US)
  Receive Date: 20150120
  Receipt Date: 20150120
  Transmission Date: 20150721
  Serious: Yes (Death)
  Sender: FDA-Public Use
  Company Number: US-ASTRAZENECA-2015SE03233

PATIENT
  Age: 256 Day
  Sex: Male

DRUGS (1)
  1. SYNAGIS [Suspect]
     Active Substance: PALIVIZUMAB
     Indication: RESPIRATORY SYNCYTIAL VIRUS INFECTION
     Dosage: 15MG/KG, 28 DAYS
     Route: 030
     Dates: start: 20141028, end: 20141213

REACTIONS (1)
  - Spinal muscular atrophy [Fatal]

NARRATIVE: CASE EVENT DATE: 20141213
